FAERS Safety Report 25028770 (Version 2)
Quarter: 2025Q1

REPORT INFORMATION
  Report Type: Spontaneous
  Country: NL (occurrence: NL)
  Receive Date: 20250302
  Receipt Date: 20250304
  Transmission Date: 20250409
  Serious: Yes (Other)
  Sender: NOVARTIS
  Company Number: None

PATIENT
  Age: 62 Year
  Sex: Female

DRUGS (1)
  1. COSENTYX [Suspect]
     Active Substance: SECUKINUMAB
     Indication: Hidradenitis
     Dosage: 2 ML, QW, (1X PER WK 2ML GEDURENDE WK0-4 DAN 1X PER MND 2ML), (COSENTYX INJVLST 150MG/ML PEN 1ML)
     Route: 065
     Dates: start: 20241115, end: 20241213

REACTIONS (6)
  - Iridocyclitis [Recovering/Resolving]
  - Conjunctivitis [Recovering/Resolving]
  - Cough [Recovering/Resolving]
  - Dysphonia [Recovering/Resolving]
  - Increased upper airway secretion [Recovering/Resolving]
  - Aphonia [Recovering/Resolving]
